FAERS Safety Report 23566934 (Version 3)
Quarter: 2025Q1

REPORT INFORMATION
  Report Type: Spontaneous
  Country: US (occurrence: US)
  Receive Date: 20240226
  Receipt Date: 20250117
  Transmission Date: 20250408
  Serious: Yes (Hospitalization, Other)
  Sender: DR REDDYS
  Company Number: US-DRL-USA-SPO/USA/24/0003095

PATIENT
  Age: 59 Year
  Sex: Female

DRUGS (12)
  1. QUETIAPINE [Suspect]
     Active Substance: QUETIAPINE
     Indication: Psychotic symptom
  2. QUETIAPINE [Suspect]
     Active Substance: QUETIAPINE
     Dosage: QUETIAPINE WAS TITRATED TO 600 MG DAILY OVER EIGHT DAYS
  3. OLANZAPINE [Suspect]
     Active Substance: OLANZAPINE
     Indication: Psychotic symptom
  4. OLANZAPINE [Suspect]
     Active Substance: OLANZAPINE
  5. RISPERIDONE [Suspect]
     Active Substance: RISPERIDONE
     Indication: Psychotic symptom
  6. VALPROIC ACID [Suspect]
     Active Substance: VALPROIC ACID
     Indication: Psychotic symptom
  7. SERTRALINE [Suspect]
     Active Substance: SERTRALINE HYDROCHLORIDE
     Indication: Psychotic symptom
  8. SERTRALINE [Suspect]
     Active Substance: SERTRALINE HYDROCHLORIDE
  9. MIRTAZAPINE [Suspect]
     Active Substance: MIRTAZAPINE
     Indication: Psychotic symptom
  10. DEFERIPRONE [Suspect]
     Active Substance: DEFERIPRONE
     Indication: Psychotic symptom
  11. DEFERIPRONE [Suspect]
     Active Substance: DEFERIPRONE
  12. VITAMIN E [Concomitant]
     Active Substance: .ALPHA.-TOCOPHEROL
     Indication: Product used for unknown indication

REACTIONS (9)
  - Neuroleptic malignant syndrome [Recovered/Resolved]
  - Parkinsonism [Recovered/Resolved]
  - Delirium [Recovered/Resolved]
  - Pancytopenia [Unknown]
  - Bradykinesia [Recovered/Resolved]
  - Muscle rigidity [Recovered/Resolved]
  - Parkinsonian gait [Recovered/Resolved]
  - Drug ineffective [Unknown]
  - Product use in unapproved indication [Unknown]
